FAERS Safety Report 18671934 (Version 1)
Quarter: 2020Q4

REPORT INFORMATION
  Report Type: Spontaneous
  Country: US (occurrence: US)
  Receive Date: 20201228
  Receipt Date: 20201228
  Transmission Date: 20210114
  Serious: No
  Sender: FDA-Public Use
  Company Number: US-COOPERSURGICAL, INC.-US-2020CPS002322

PATIENT
  Age: 43 Year
  Sex: Female
  Weight: 78.91 kg

DRUGS (2)
  1. ZYRTEC [Concomitant]
     Active Substance: CETIRIZINE HYDROCHLORIDE
     Indication: PRODUCT USED FOR UNKNOWN INDICATION
     Dosage: UNK
     Route: 065
  2. PARAGARD T 380A [Suspect]
     Active Substance: COPPER
     Indication: CONTRACEPTION
     Dosage: UNK
     Route: 015
     Dates: start: 20200901

REACTIONS (5)
  - Abdominal pain [Recovered/Resolved]
  - Dysfunctional uterine bleeding [Recovered/Resolved]
  - Breast pain [Recovered/Resolved]
  - Complication of device insertion [Recovered/Resolved]
  - Device deployment issue [Recovered/Resolved]

NARRATIVE: CASE EVENT DATE: 202009
